FAERS Safety Report 16473833 (Version 1)
Quarter: 2019Q2

REPORT INFORMATION
  Report Type: Spontaneous
  Country: JP (occurrence: JP)
  Receive Date: 20190625
  Receipt Date: 20190625
  Transmission Date: 20190711
  Serious: Yes (Death)
  Sender: FDA-Public Use
  Company Number: JP-ELI_LILLY_AND_COMPANY-JP201906010476

PATIENT
  Age: 73 Year
  Sex: Female

DRUGS (3)
  1. FEMARA [Concomitant]
     Active Substance: LETROZOLE
     Indication: BREAST CANCER
     Dosage: 2.5 MG, UNKNOWN
     Route: 048
  2. LOPEMIN [LOPERAMIDE HYDROCHLORIDE] [Concomitant]
     Dosage: 1 MG, UNKNOWN
     Route: 048
  3. VERZENIO [Suspect]
     Active Substance: ABEMACICLIB
     Indication: BREAST CANCER
     Dosage: 150 MG, BID
     Route: 048
     Dates: start: 20190403, end: 20190524

REACTIONS (2)
  - Arrhythmia [Fatal]
  - Abdominal pain [Unknown]

NARRATIVE: CASE EVENT DATE: 20190524
